FAERS Safety Report 5476380-5 (Version None)
Quarter: 2007Q4

REPORT INFORMATION
  Report Type: 
  Country: None (occurrence: None)
  Receive Date: 20071003
  Receipt Date: 20070921
  Transmission Date: 20080405
  Serious: Yes (Other)
  Sender: FDA-Public Use
  Company Number: GB-PFIZER INC-2007079422

PATIENT
  Age: 53 Year
  Sex: Female
  Weight: 79 kg

DRUGS (2)
  1. CHAMPIX [Suspect]
     Indication: SMOKING CESSATION THERAPY
     Route: 048
     Dates: start: 20070727, end: 20070823
  2. CLIMAVAL [Concomitant]
     Route: 048

REACTIONS (2)
  - EYELID OEDEMA [None]
  - RASH [None]
